FAERS Safety Report 4600208-6 (Version None)
Quarter: 2005Q1

REPORT INFORMATION
  Report Type: 
  Country: None (occurrence: None)
  Receive Date: 20050307
  Receipt Date: 20050224
  Transmission Date: 20050727
  Serious: Yes (Hospitalization)
  Sender: FDA-Public Use
  Company Number: JP-ROCHE-397062

PATIENT
  Age: 89 Year
  Sex: Female

DRUGS (1)
  1. TAMIFLU [Suspect]
     Indication: INFLUENZA
     Route: 048
     Dates: start: 20050221, end: 20050224

REACTIONS (1)
  - LEUKOPENIA [None]
